FAERS Safety Report 4424194-7 (Version None)
Quarter: 2004Q3

REPORT INFORMATION
  Report Type: 
  Country: None (occurrence: None)
  Receive Date: 20040812
  Receipt Date: 20040730
  Transmission Date: 20050211
  Serious: Yes (Disabling)
  Sender: FDA-Public Use
  Company Number: 200412468JP

PATIENT
  Sex: 0

DRUGS (1)
  1. AMARYL [Suspect]
     Route: 048

REACTIONS (2)
  - GENERAL NUTRITION DISORDER [None]
  - TOOTH LOSS [None]
